FAERS Safety Report 4303285-5 (Version None)
Quarter: 2004Q1

REPORT INFORMATION
  Report Type: 
  Country: None (occurrence: None)
  Receive Date: 20040223
  Receipt Date: 20040213
  Transmission Date: 20041129
  Serious: Yes (Other)
  Sender: FDA-Public Use
  Company Number: 2003180825FR

PATIENT
  Age: 55 Year
  Sex: Male

DRUGS (7)
  1. VANTIN [Suspect]
     Dosage: 200 MG, SINGLE, ORAL
     Route: 048
     Dates: start: 20030929, end: 20030929
  2. ASPIRIN [Concomitant]
  3. TRIMETAZIDINE [Concomitant]
  4. DILTIAZEM HYDROCHLORIDE [Concomitant]
  5. QVAR  (BECLOMETASONE DIPROPIONATE) [Concomitant]
  6. FORADIL [Concomitant]
  7. BRICANYL [Concomitant]

REACTIONS (1)
  - BRONCHOSPASM [None]
